FAERS Safety Report 12252567 (Version 2)
Quarter: 2016Q2

REPORT INFORMATION
  Report Type: Spontaneous
  Country: IT (occurrence: IT)
  Receive Date: 20160411
  Receipt Date: 20160622
  Transmission Date: 20160815
  Serious: Yes (Other)
  Sender: FDA-Public Use
  Company Number: IT-TEVA-649616ACC

PATIENT
  Age: 71 Year
  Sex: Female

DRUGS (6)
  1. GLUCOPHAGE - 850 MG COMPRESSE RIVESTITE BRUNO FARMACEUTICI S.P.A. [Concomitant]
     Indication: PRODUCT USED FOR UNKNOWN INDICATION
     Dosage: 3 DF
     Route: 048
  2. ATORIS - 10 MG COMPRESSE RIVESTITE CON FILM KRKA D.D. NOVO MESTO [Concomitant]
     Indication: PRODUCT USED FOR UNKNOWN INDICATION
     Dosage: 1 DF
     Route: 048
  3. LETROZOLO TEVA - 2,5 MG COMPRESSE RIVESTITE CON FILM - TEVA ITALIA S.R [Suspect]
     Active Substance: LETROZOLE
     Indication: BREAST CANCER
     Dosage: 1 DOSAGE FORMS DAILY; 1 DF DAILY
     Route: 048
     Dates: start: 20160301, end: 20160314
  4. RAMIPRIL. [Concomitant]
     Active Substance: RAMIPRIL
     Indication: PRODUCT USED FOR UNKNOWN INDICATION
     Dosage: 7.5 MG
     Route: 048
  5. BISOPROLOLO SANDOZ - 2,5 MG COMPRESSE RIVESTITE CON FILM SANDOZ S.P.A. [Concomitant]
     Indication: PRODUCT USED FOR UNKNOWN INDICATION
  6. CARDIOASPIRIN - 100 MG COMPRESSE GASTRORESISTENTI BAYER S.P.A. [Concomitant]
     Indication: PRODUCT USED FOR UNKNOWN INDICATION
     Dosage: 1 DF
     Route: 048

REACTIONS (1)
  - Dermatitis allergic [Recovering/Resolving]

NARRATIVE: CASE EVENT DATE: 20160304
